FAERS Safety Report 5972174-2 (Version None)
Quarter: 2008Q4

REPORT INFORMATION
  Report Type: 
  Country: None (occurrence: None)
  Receive Date: 20081201
  Receipt Date: 20071005
  Transmission Date: 20090506
  Serious: No
  Sender: FDA-Public Use
  Company Number: US-TEVA-162594USA

PATIENT
  Sex: Female
  Weight: 95.34 kg

DRUGS (2)
  1. SALBUTAMOL SULFATE INHALATION, 0.09 MG [Suspect]
     Route: 048
     Dates: start: 20060101
  2. SERETIDE [Concomitant]

REACTIONS (2)
  - HYPOAESTHESIA ORAL [None]
  - PRODUCT QUALITY ISSUE [None]
